FAERS Safety Report 17701548 (Version 1)
Quarter: 2020Q2

REPORT INFORMATION
  Report Type: Report from Study
  Country: US (occurrence: US)
  Receive Date: 20200424
  Receipt Date: 20200424
  Transmission Date: 20200714
  Serious: Yes (Other)
  Sender: FDA-Public Use
  Company Number: US-ROCHE-2350062

PATIENT
  Sex: Female

DRUGS (14)
  1. VITAMINS NOS [Concomitant]
     Active Substance: VITAMINS
  2. NIACIN. [Concomitant]
     Active Substance: NIACIN
  3. RESTASIS [Concomitant]
     Active Substance: CYCLOSPORINE
     Route: 065
  4. GABAPENTIN. [Concomitant]
     Active Substance: GABAPENTIN
     Route: 048
  5. OCREVUS [Suspect]
     Active Substance: OCRELIZUMAB
     Indication: MULTIPLE SCLEROSIS
  6. ADDERALL [Concomitant]
     Active Substance: AMPHETAMINE ASPARTATE\AMPHETAMINE SULFATE\DEXTROAMPHETAMINE SACCHARATE\DEXTROAMPHETAMINE SULFATE
     Indication: FATIGUE
     Route: 048
  7. BISACODYL. [Concomitant]
     Active Substance: BISACODYL
  8. VITAMIN D [VITAMIN D NOS] [Concomitant]
     Active Substance: VITAMIN D NOS
  9. PROZAC [Concomitant]
     Active Substance: FLUOXETINE HYDROCHLORIDE
     Route: 065
  10. SYNTHROID [Concomitant]
     Active Substance: LEVOTHYROXINE SODIUM
  11. OCREVUS [Suspect]
     Active Substance: OCRELIZUMAB
     Indication: RELAPSING MULTIPLE SCLEROSIS
     Dosage: X2 , 2 WEEKS
     Route: 065
     Dates: start: 201906
  12. AMANTADINE. [Concomitant]
     Active Substance: AMANTADINE HYDROCHLORIDE
     Indication: FATIGUE
     Route: 048
  13. FOLIC ACID. [Concomitant]
     Active Substance: FOLIC ACID
  14. HYDROCODONE BITARTRATE AND ACETAMINOPHEN [Concomitant]
     Active Substance: ACETAMINOPHEN\HYDROCODONE BITARTRATE
     Route: 065

REACTIONS (5)
  - Sinusitis [Unknown]
  - Macular hole [Unknown]
  - Ill-defined disorder [Unknown]
  - Intentional product misuse [Unknown]
  - Off label use [Unknown]
